FAERS Safety Report 9308099 (Version 3)
Quarter: 2013Q4

REPORT INFORMATION
  Report Type: Spontaneous
  Country: IT (occurrence: IT)
  Receive Date: 20130524
  Receipt Date: 20131022
  Transmission Date: 20140711
  Serious: Yes (Other)
  Sender: FDA-Public Use
  Company Number: IT-PFIZER INC-2013147454

PATIENT
  Age: 75 Year
  Sex: Male

DRUGS (5)
  1. TORVAST [Suspect]
     Indication: CORONARY ARTERY DISEASE
     Dosage: 80 MG, 1X/DAY
     Route: 048
     Dates: start: 20130428, end: 20130501
  2. RANEXA [Interacting]
     Indication: CORONARY ARTERY DISEASE
     Dosage: 750 MG, 1X/DAY
     Route: 048
     Dates: start: 20130428, end: 20130501
  3. PLAVIX [Concomitant]
     Dosage: UNK
     Route: 048
     Dates: start: 20130428, end: 20130508
  4. IRBESARTAN [Concomitant]
     Dosage: UNK
     Dates: start: 20130428, end: 20130508
  5. PANTOPRAZOLE [Concomitant]
     Dosage: UNK
     Dates: start: 20130428, end: 20130508

REACTIONS (2)
  - Drug interaction [Recovered/Resolved]
  - Hypersensitivity [Recovered/Resolved]
